FAERS Safety Report 5944095-2 (Version None)
Quarter: 2008Q4

REPORT INFORMATION
  Report Type: 
  Country: None (occurrence: None)
  Receive Date: 20081021
  Receipt Date: 20080612
  Transmission Date: 20090506
  Serious: Yes (Other)
  Sender: FDA-Public Use
  Company Number: US-WYE-H04459408

PATIENT
  Age: 42 Year
  Sex: Female

DRUGS (2)
  1. PREMARIN [Suspect]
     Indication: HORMONE REPLACEMENT THERAPY
     Dosage: ORAL ; 0.625 MG 1X PER 1 DAY, ORAL
     Route: 048
     Dates: start: 20080601, end: 20080609
  2. PREMARIN [Suspect]
     Indication: HORMONE REPLACEMENT THERAPY
     Dosage: ORAL ; 0.625 MG 1X PER 1 DAY, ORAL
     Route: 048
     Dates: start: 20080101

REACTIONS (3)
  - HYPERSENSITIVITY [None]
  - RASH GENERALISED [None]
  - RASH PRURITIC [None]
